FAERS Safety Report 8033222-1 (Version None)
Quarter: 2011Q4

REPORT INFORMATION
  Report Type: 
  Country: None (occurrence: None)
  Receive Date: 20111223
  Receipt Date: 20111220
  Transmission Date: 20120403
  Serious: Yes (Death)
  Sender: FDA-Public Use
  Company Number: 2010SP063864

PATIENT
  Weight: 80 kg

DRUGS (3)
  1. TEMODAL [Suspect]
     Indication: BRAIN NEOPLASM
     Dosage: 360 MG;QD;INDRP, 360 MG;QD;INDRP, 360 MG;QD;INDRP
     Dates: start: 20100706, end: 20100710
  2. TEMODAL [Suspect]
     Indication: BRAIN NEOPLASM
     Dosage: 360 MG;QD;INDRP, 360 MG;QD;INDRP, 360 MG;QD;INDRP
     Dates: start: 20100831, end: 20100904
  3. TEMODAL [Suspect]
     Indication: BRAIN NEOPLASM
     Dosage: 360 MG;QD;INDRP, 360 MG;QD;INDRP, 360 MG;QD;INDRP
     Dates: start: 20100803, end: 20100807

REACTIONS (1)
  - MALAISE [None]
